FAERS Safety Report 18851496 (Version 1)
Quarter: 2021Q1

REPORT INFORMATION
  Report Type: Spontaneous
  Country: US (occurrence: US)
  Receive Date: 20210204
  Receipt Date: 20210204
  Transmission Date: 20210420
  Serious: Yes (Hospitalization, Disabling)
  Sender: FDA-Public Use
  Company Number: None

PATIENT
  Age: 61 Year
  Sex: Female
  Weight: 76.5 kg

DRUGS (1)
  1. INDOMETHACIN 50 MG CAPS [Suspect]
     Active Substance: INDOMETHACIN
     Indication: CLUSTER HEADACHE
     Dosage: ?          QUANTITY:603172 CAPSULE(S);?
     Route: 048
     Dates: start: 20201217, end: 20201219

REACTIONS (9)
  - Influenza like illness [None]
  - Pain [None]
  - Asthenia [None]
  - Dizziness [None]
  - Headache [None]
  - Diarrhoea [None]
  - Bipolar disorder [None]
  - Renal pain [None]
  - Cerebrovascular accident [None]

NARRATIVE: CASE EVENT DATE: 20201217
